FAERS Safety Report 6684950-1 (Version None)
Quarter: 2010Q2

REPORT INFORMATION
  Report Type: 
  Country: None (occurrence: None)
  Receive Date: 20100416
  Receipt Date: 20100412
  Transmission Date: 20101027
  Serious: Yes (Life-Threatening, Hospitalization)
  Sender: FDA-Public Use
  Company Number: US-CELGENEUS-163-21880-10030957

PATIENT
  Sex: Male
  Weight: 71.3 kg

DRUGS (11)
  1. REVLIMID [Suspect]
     Route: 048
     Dates: start: 20100223, end: 20100301
  2. REVLIMID [Suspect]
     Route: 048
     Dates: start: 20100302, end: 20100309
  3. REVLIMID [Suspect]
     Route: 048
     Dates: start: 20100323
  4. ACYCLOVIR [Concomitant]
     Indication: PROPHYLAXIS
     Route: 048
  5. ALLOPURINOL [Concomitant]
     Indication: PROPHYLAXIS
     Route: 048
  6. BACTRIM [Concomitant]
     Indication: PROPHYLAXIS
     Route: 048
  7. COLCHICINE [Concomitant]
     Indication: PROPHYLAXIS
     Route: 048
  8. ASPIRIN [Concomitant]
     Indication: PROPHYLAXIS
     Route: 048
  9. METFORMIN [Concomitant]
     Route: 048
  10. TOPROL-XL [Concomitant]
     Indication: HYPERTENSION
     Route: 048
  11. ATIVAN [Concomitant]
     Indication: ANXIETY
     Route: 048

REACTIONS (2)
  - FEBRILE NEUTROPENIA [None]
  - HYPOTENSION [None]
